FAERS Safety Report 18316043 (Version 1)
Quarter: 2020Q3

REPORT INFORMATION
  Report Type: Spontaneous
  Country: DE (occurrence: DE)
  Receive Date: 20200927
  Receipt Date: 20200927
  Transmission Date: 20201103
  Serious: Yes (Hospitalization)
  Sender: FDA-Public Use
  Company Number: DE-TEVA-2020-DE-1831772

PATIENT
  Age: 54 Year
  Sex: Female
  Weight: 72 kg

DRUGS (6)
  1. HALOPERIDOL. [Concomitant]
     Active Substance: HALOPERIDOL
     Dosage: 9 DOSAGE FORMS DAILY; 1 GTT, 3?3?3?0
  2. LAXOBERAL 7,5MG [Concomitant]
     Dosage: 12 DOSAGE FORMS DAILY; 1 GTT, 0?0?12?0
  3. METAMIZOL [Concomitant]
     Active Substance: METAMIZOLE SODIUM
     Dosage: 120 DOSAGE FORMS DAILY; 1 GTT, 30?30?30?30
  4. DEXAMETHASON [Suspect]
     Active Substance: DEXAMETHASONE
     Dosage: 4 MILLIGRAM DAILY; 1?0?0?0
  5. PANTOPRAZOL [Concomitant]
     Active Substance: PANTOPRAZOLE SODIUM
     Dosage: 40 MILLIGRAM DAILY; 1?0?0?0
  6. PREGABALIN. [Concomitant]
     Active Substance: PREGABALIN
     Dosage: 5 ML DAILY; 1?0?1?0, JUICE

REACTIONS (7)
  - Cough [Unknown]
  - Chills [Unknown]
  - Dysuria [Unknown]
  - Painful respiration [Unknown]
  - Pyrexia [Unknown]
  - Pulmonary pain [Unknown]
  - Hyperhidrosis [Unknown]
